FAERS Safety Report 5826520-0 (Version None)
Quarter: 2008Q3

REPORT INFORMATION
  Report Type: 
  Country: None (occurrence: None)
  Receive Date: 20080725
  Receipt Date: 20080721
  Transmission Date: 20090109
  Serious: Yes (Other)
  Sender: FDA-Public Use
  Company Number: 2008019041

PATIENT
  Age: 65 Year
  Sex: Female
  Weight: 47.6277 kg

DRUGS (2)
  1. BENADRYL [Suspect]
     Indication: ALLERGY TO ARTHROPOD STING
     Dosage: TWO STRIPS ONCE, ORAL
     Route: 048
     Dates: start: 20080721, end: 20080721
  2. ACTONEL [Concomitant]

REACTIONS (3)
  - ABDOMINAL PAIN UPPER [None]
  - GLOSSODYNIA [None]
  - SWOLLEN TONGUE [None]
